FAERS Safety Report 11568956 (Version 2)
Quarter: 2015Q4

REPORT INFORMATION
  Report Type: Report from Study
  Country: US (occurrence: US)
  Receive Date: 20150929
  Receipt Date: 20151028
  Transmission Date: 20160304
  Serious: Yes (Hospitalization, Other)
  Sender: FDA-Public Use
  Company Number: US-009507513-1509USA011692

PATIENT
  Age: 14 Year
  Sex: Female
  Weight: 53 kg

DRUGS (16)
  1. DOXORUBICIN HYDROCHLORIDE. [Suspect]
     Active Substance: DOXORUBICIN HYDROCHLORIDE
     Indication: ANAPLASTIC LARGE CELL LYMPHOMA T- AND NULL-CELL TYPES
     Dosage: 25 MG/M2, OVER 1-15 MIN ON DAYS 4 AND 5
     Route: 042
  2. ETOPOSIDE. [Suspect]
     Active Substance: ETOPOSIDE
     Indication: ANAPLASTIC LARGE CELL LYMPHOMA T- AND NULL-CELL TYPES
     Dosage: 100 MG/M2,OVER 2 HOURS ON DAYS 4 AND 5
     Route: 042
     Dates: start: 20141007, end: 20150112
  3. METHOTREXATE [Suspect]
     Active Substance: METHOTREXATE
     Indication: ANAPLASTIC LARGE CELL LYMPHOMA T- AND NULL-CELL TYPES
     Dosage: 7.5-12 MG IT ON DAY 1(AGE BASED DOSING)(PROPHASE)
     Route: 037
     Dates: start: 20141007
  4. IFOSFAMIDE. [Concomitant]
     Active Substance: IFOSFAMIDE
     Indication: ANAPLASTIC LARGE CELL LYMPHOMA T- AND NULL-CELL TYPES
     Dosage: 800 MG/M2, OVER 60 MINS ON DAYS 1-5
     Route: 042
     Dates: start: 20141007, end: 20150111
  5. HEXADROL [Suspect]
     Active Substance: DEXAMETHASONE
     Indication: ANAPLASTIC LARGE CELL LYMPHOMA T- AND NULL-CELL TYPES
     Dosage: 5 MG/M2, QD ON DAYS 1-2(PROPHASE) AND BID ON DAYS 3-5
     Route: 048
     Dates: start: 20141007
  6. CRIZOTINIB [Suspect]
     Active Substance: CRIZOTINIB
     Indication: ANAPLASTIC LARGE CELL LYMPHOMA T- AND NULL-CELL TYPES
     Dosage: 165 MG/M2 PO BID ON DAYS 1-21
     Route: 048
     Dates: start: 20141007, end: 20150211
  7. METHOTREXATE [Suspect]
     Active Substance: METHOTREXATE
     Dosage: 3000 MG/M2, OVER 3 HOURS ON DAY 1(CYCLE 1,3 AND 5)
     Route: 042
     Dates: start: 20141007
  8. CYCLOPHOSPHAMIDE. [Suspect]
     Active Substance: CYCLOPHOSPHAMIDE
     Dosage: 200 MG/M2, OVER 15-30 MINS ON DAYS 1-5
     Route: 042
  9. HYDROCORTISONE. [Concomitant]
     Active Substance: HYDROCORTISONE
     Indication: ANAPLASTIC LARGE CELL LYMPHOMA T- AND NULL-CELL TYPES
     Dosage: 7.5-12 MG ON DAY 1(AGE BASED DOSING)
     Route: 037
     Dates: start: 20141007, end: 20141007
  10. HEXADROL [Suspect]
     Active Substance: DEXAMETHASONE
     Dosage: 5 MG/M2, BID ON DAYS 1-5
     Route: 048
     Dates: start: 20141007
  11. CRIZOTINIB [Suspect]
     Active Substance: CRIZOTINIB
     Dosage: 165 MG/M2 PO BID ON DAYS 1-21
     Route: 048
  12. CYTARABINE. [Concomitant]
     Active Substance: CYTARABINE
     Indication: ANAPLASTIC LARGE CELL LYMPHOMA T- AND NULL-CELL TYPES
     Dosage: 15-24 MG ON DAY 1(AGE BASED DOSING)
     Route: 037
     Dates: start: 20141007, end: 20141007
  13. CYTARABINE. [Concomitant]
     Active Substance: CYTARABINE
     Dosage: 150 MG/M2, OVER 1-30 MINS Q12 HOURS ON DAYS 4 AND 5
     Route: 042
  14. HEXADROL [Suspect]
     Active Substance: DEXAMETHASONE
     Dosage: 5 MG/M2, BID ON DAYS 1-5
     Route: 048
  15. METHOTREXATE [Suspect]
     Active Substance: METHOTREXATE
     Dosage: 3000 MG/M2, OVER 3 HOURS ON DAY 1(CYCLE 2,4 AND 6)
     Route: 042
  16. CYCLOPHOSPHAMIDE. [Suspect]
     Active Substance: CYCLOPHOSPHAMIDE
     Indication: ANAPLASTIC LARGE CELL LYMPHOMA T- AND NULL-CELL TYPES
     Dosage: 200 MG/M2, OVER 15-30 MINS ON DAYS 1 AND 2(PROPHASE)
     Route: 042
     Dates: start: 20141007

REACTIONS (3)
  - Anaemia [Not Recovered/Not Resolved]
  - White blood cell count decreased [Recovered/Resolved]
  - Hypokalaemia [Not Recovered/Not Resolved]

NARRATIVE: CASE EVENT DATE: 20150211
